FAERS Safety Report 25748542 (Version 2)
Quarter: 2025Q3

REPORT INFORMATION
  Report Type: Report from Study
  Country: US (occurrence: US)
  Receive Date: 20250902
  Receipt Date: 20250922
  Transmission Date: 20251020
  Serious: Yes (Hospitalization, Other)
  Sender: UCB
  Company Number: US-UCBSA-2025053034

PATIENT
  Age: 30 Year
  Sex: Male

DRUGS (3)
  1. BRIVARACETAM [Suspect]
     Active Substance: BRIVARACETAM
     Indication: Seizure
     Dosage: 100 MILLIGRAM, 2X/DAY (BID)
     Route: 048
  2. ABILIFY [Concomitant]
     Active Substance: ARIPIPRAZOLE
     Indication: Seizure
     Dosage: UNK, 2X/DAY (BID)
     Route: 048
  3. ZOFRAN [Concomitant]
     Active Substance: ONDANSETRON HYDROCHLORIDE
     Indication: Seizure
     Route: 048

REACTIONS (11)
  - Seizure [Recovering/Resolving]
  - Generalised tonic-clonic seizure [Recovering/Resolving]
  - Pain [Unknown]
  - Migraine [Unknown]
  - Libido decreased [Unknown]
  - Mood swings [Unknown]
  - Dehydration [Unknown]
  - Sleep disorder [Unknown]
  - Vomiting [Unknown]
  - Pollakiuria [Unknown]
  - Hyperhidrosis [Unknown]

NARRATIVE: CASE EVENT DATE: 20250821
